FAERS Safety Report 19969940 (Version 1)
Quarter: 2021Q4

REPORT INFORMATION
  Report Type: Spontaneous
  Country: FR (occurrence: FR)
  Receive Date: 20211019
  Receipt Date: 20211019
  Transmission Date: 20220303
  Serious: Yes (Other)
  Sender: FDA-Public Use
  Company Number: FR-VIIV HEALTHCARE ULC-FR2021EME205224

PATIENT
  Age: 31 Year
  Sex: Female

DRUGS (3)
  1. PIFELTRO [Suspect]
     Active Substance: DORAVIRINE
     Indication: HIV infection
     Dosage: UNK
  2. TIVICAY [Suspect]
     Active Substance: DOLUTEGRAVIR SODIUM
     Indication: HIV infection
     Dosage: UNK
  3. EPIVIR [Suspect]
     Active Substance: LAMIVUDINE
     Indication: HIV infection
     Dosage: UNK

REACTIONS (3)
  - Pathogen resistance [Unknown]
  - Treatment noncompliance [Unknown]
  - Viral mutation identified [Unknown]

NARRATIVE: CASE EVENT DATE: 20200201
